FAERS Safety Report 16726732 (Version 1)
Quarter: 2019Q3

REPORT INFORMATION
  Report Type: Spontaneous
  Country: FR (occurrence: FR)
  Receive Date: 20190821
  Receipt Date: 20190821
  Transmission Date: 20191005
  Serious: Yes (Other)
  Sender: FDA-Public Use
  Company Number: FR-ANIPHARMA-2019-FR-000186

PATIENT
  Age: 56 Year
  Sex: Male

DRUGS (2)
  1. LERCANIDIPINE [Suspect]
     Active Substance: LERCANIDIPINE
     Indication: SUICIDE ATTEMPT
     Dosage: 200 MG UNK
     Route: 048
     Dates: start: 20180820, end: 20180820
  2. CANDESARTAN. [Suspect]
     Active Substance: CANDESARTAN
     Indication: SUICIDE ATTEMPT
     Dosage: 160 MG UNK
     Route: 048
     Dates: start: 20180820, end: 20180820

REACTIONS (3)
  - Product use in unapproved indication [Recovered/Resolved]
  - Toxicity to various agents [Unknown]
  - Hypotension [Recovered/Resolved]

NARRATIVE: CASE EVENT DATE: 20180820
